FAERS Safety Report 11631799 (Version 1)
Quarter: 2015Q4

REPORT INFORMATION
  Report Type: Report from Study
  Country: CN (occurrence: CN)
  Receive Date: 20151015
  Receipt Date: 20151015
  Transmission Date: 20160304
  Serious: Yes (Other)
  Sender: FDA-Public Use
  Company Number: CN-ROCHE-1645508

PATIENT

DRUGS (9)
  1. GEMCITABINE [Suspect]
     Active Substance: GEMCITABINE\GEMCITABINE HYDROCHLORIDE
     Indication: NON-SMALL CELL LUNG CANCER
     Dosage: DAY1, DAY8
     Route: 041
  2. CISPLATIN. [Suspect]
     Active Substance: CISPLATIN
     Indication: NON-SMALL CELL LUNG CANCER
     Dosage: 75 MG/M2 ON DAY 1, OR AT 25 MG/M2, DAY 1 TO DAY3
     Route: 041
  3. CARBOPLATIN. [Suspect]
     Active Substance: CARBOPLATIN
     Indication: NON-SMALL CELL LUNG CANCER
     Dosage: DAY1
     Route: 041
  4. PEMETREXED [Suspect]
     Active Substance: PEMETREXED
     Indication: NON-SMALL CELL LUNG CANCER
     Dosage: DAY1
     Route: 041
  5. DOCETAXEL. [Suspect]
     Active Substance: DOCETAXEL
     Indication: NON-SMALL CELL LUNG CANCER
     Dosage: DAY1
     Route: 041
  6. PACLITAXEL. [Suspect]
     Active Substance: PACLITAXEL
     Indication: NON-SMALL CELL LUNG CANCER
     Dosage: DAY1
     Route: 041
  7. NAVELBINE [Suspect]
     Active Substance: VINORELBINE TARTRATE
     Indication: NON-SMALL CELL LUNG CANCER
     Dosage: DAY1, DAY8
     Route: 040
  8. LOBAPLATIN [Suspect]
     Active Substance: LOBAPLATIN
     Indication: NON-SMALL CELL LUNG CANCER
     Route: 041
  9. BEVACIZUMAB [Suspect]
     Active Substance: BEVACIZUMAB
     Indication: NON-SMALL CELL LUNG CANCER
     Route: 041

REACTIONS (7)
  - Leukopenia [Unknown]
  - Hepatic function abnormal [Unknown]
  - Renal impairment [Unknown]
  - Hypertension [Unknown]
  - Deep vein thrombosis [Unknown]
  - Anaemia [Unknown]
  - Rash [Unknown]
